FAERS Safety Report 14239498 (Version 1)
Quarter: 2017Q4

REPORT INFORMATION
  Report Type: Spontaneous
  Country: US (occurrence: None)
  Receive Date: 20171129
  Receipt Date: 20171129
  Transmission Date: 20180321
  Serious: No
  Sender: FDA-Public Use
  Company Number: None

PATIENT
  Age: 69 Year
  Sex: Male

DRUGS (2)
  1. ETANERCEPT [Suspect]
     Active Substance: ETANERCEPT
     Indication: PSORIASIS
     Dosage: OTHER
     Route: 058
     Dates: start: 20080904, end: 20151022
  2. ADALIMUMAB [Suspect]
     Active Substance: ADALIMUMAB
     Indication: PSORIASIS
     Dosage: OTHER
     Route: 058
     Dates: start: 20151022, end: 20170203

REACTIONS (5)
  - Adenocarcinoma pancreas [None]
  - Metastases to abdominal cavity [None]
  - Metastases to liver [None]
  - Metastases to lung [None]
  - Metastases to adrenals [None]

NARRATIVE: CASE EVENT DATE: 20170404
